FAERS Safety Report 14146048 (Version 1)
Quarter: 2017Q4

REPORT INFORMATION
  Report Type: Spontaneous
  Country: JP (occurrence: JP)
  Receive Date: 20171031
  Receipt Date: 20171031
  Transmission Date: 20180321
  Serious: Yes (Hospitalization, Other)
  Sender: FDA-Public Use
  Company Number: JP-PFIZER INC-2017464035

PATIENT
  Age: 47 Year
  Sex: Female
  Weight: 48 kg

DRUGS (17)
  1. HERCEPTIN [Concomitant]
     Active Substance: TRASTUZUMAB
     Dosage: UNK
     Dates: start: 20170908
  2. PREDNISOLONE. [Concomitant]
     Active Substance: PREDNISOLONE
     Dosage: 7.5 MG, 1X/DAY
     Dates: start: 20170410
  3. LANSOPRAZOLE. [Concomitant]
     Active Substance: LANSOPRAZOLE
     Dosage: 15 MG, 1X/DAY
     Dates: start: 20170710
  4. ATP [Concomitant]
     Active Substance: ADENOSINE TRIPHOSPHATE DISODIUM
     Dosage: 1 DF, 3X/DAY
     Dates: start: 20170709
  5. RISPERIDONE. [Concomitant]
     Active Substance: RISPERIDONE
     Dosage: 1 MG, 1X/DAY
     Dates: start: 20170709
  6. HERCEPTIN [Concomitant]
     Active Substance: TRASTUZUMAB
     Indication: CHEMOTHERAPY
     Dosage: 360 MG, UNK
     Dates: start: 20170904
  7. RIZABEN [Concomitant]
     Active Substance: TRANILAST
     Dosage: 100 MG, 3X/DAY
     Dates: start: 20170409
  8. MAGMITT [Concomitant]
     Active Substance: MAGNESIUM OXIDE
     Dosage: 330 MG, 3X/DAY
     Dates: start: 20170709
  9. DEXART [Concomitant]
     Active Substance: DEXAMETHASONE SODIUM PHOSPHATE
     Dosage: UNK
     Dates: start: 20170908
  10. AZULENE [Concomitant]
     Active Substance: AZULENE
     Dosage: UNK UNK, 3X/DAY
     Dates: start: 20170414
  11. ALFACALCIDOL [Concomitant]
     Active Substance: ALFACALCIDOL
     Dosage: 1 MG, 1X/DAY
     Dates: start: 20170710
  12. DOCETAXEL HOSPIRA [Suspect]
     Active Substance: DOCETAXEL
     Indication: BREAST CANCER
     Dosage: 100 MG, DAILY
     Route: 041
     Dates: start: 20170904, end: 20170904
  13. DEXART [Concomitant]
     Active Substance: DEXAMETHASONE SODIUM PHOSPHATE
     Indication: CHEMOTHERAPY
     Dosage: 6.6 MG UNK
     Dates: start: 20170904
  14. METHYCOBAL [Concomitant]
     Active Substance: METHYLCOBALAMIN
     Dosage: 50 MG, 3X/DAY
     Dates: start: 20170409
  15. EPINASTINE. [Concomitant]
     Active Substance: EPINASTINE HYDROCHLORIDE
     Dosage: 20 MG, 1X/DAY
     Dates: start: 20170907
  16. SENNARIDE [Concomitant]
     Active Substance: SENNOSIDES A AND B
     Dosage: 2 DF, DAILY
     Dates: start: 20170909
  17. FENTANYL. [Concomitant]
     Active Substance: FENTANYL
     Dosage: 1 DF, 1X/DAY
     Dates: start: 20170925

REACTIONS (11)
  - Oropharyngeal pain [Unknown]
  - Malaise [Not Recovered/Not Resolved]
  - Back disorder [Recovered/Resolved]
  - Ascites [Recovering/Resolving]
  - Stomatitis [Recovered/Resolved]
  - Abdominal distension [Recovering/Resolving]
  - Pyrexia [Unknown]
  - Nasal congestion [Unknown]
  - Insomnia [Unknown]
  - Mouth haemorrhage [Unknown]
  - Oedema peripheral [Recovering/Resolving]

NARRATIVE: CASE EVENT DATE: 20170908
